FAERS Safety Report 8372889-5 (Version None)
Quarter: 2012Q2

REPORT INFORMATION
  Report Type: 
  Country: None (occurrence: None)
  Receive Date: 20120521
  Receipt Date: 20120515
  Transmission Date: 20120825
  Serious: Yes (Disabling)
  Sender: FDA-Public Use
  Company Number: FR-PFIZER INC-2012116739

PATIENT
  Age: 73 Year
  Sex: Female

DRUGS (8)
  1. COUMADIN [Suspect]
     Indication: PRODUCT USED FOR UNKNOWN INDICATION
     Dosage: UNK
     Route: 048
     Dates: end: 20101201
  2. NEXIUM [Concomitant]
     Dosage: UNK
  3. LORAZEPAM [Concomitant]
     Dosage: UNK
  4. ALDACTONE [Suspect]
     Indication: PRODUCT USED FOR UNKNOWN INDICATION
     Dosage: UNK;DAILY
     Route: 048
  5. LASIX [Suspect]
     Indication: PRODUCT USED FOR UNKNOWN INDICATION
     Dosage: 100 MG, DAILY
     Route: 048
  6. DUPHALAC [Concomitant]
     Dosage: UNK
  7. METOPROLOL [Suspect]
     Indication: PRODUCT USED FOR UNKNOWN INDICATION
     Dosage: 100 MG, DAILY
     Route: 048
     Dates: end: 20101201
  8. CORDARONE [Suspect]
     Dosage: 100 MG, DAILY
     Route: 048
     Dates: end: 20101201

REACTIONS (2)
  - PULMONARY FIBROSIS [None]
  - DYSPNOEA [None]
